FAERS Safety Report 5005789-9 (Version None)
Quarter: 2006Q2

REPORT INFORMATION
  Report Type: 
  Country: None (occurrence: None)
  Receive Date: 20060516
  Receipt Date: 20060428
  Transmission Date: 20061013
  Serious: Yes (Hospitalization)
  Sender: FDA-Public Use
  Company Number: US200604004739

PATIENT
  Age: 12 Year
  Sex: Female
  Weight: 39.4 kg

DRUGS (4)
  1. SOMATROPIN (SOMATROPIN) CARTRIDGE [Suspect]
     Indication: TURNER'S SYNDROME
     Dosage: 2.8 MG, DAILY (1/D), SUBCUTANEOUS
     Route: 058
     Dates: start: 20000904
  2. HUMATROPEN (HUMATROPEN) [Concomitant]
  3. CONJUGATED ESTROGENS [Concomitant]
  4. ADVIL [Concomitant]

REACTIONS (2)
  - ARTHRITIS BACTERIAL [None]
  - TURNER'S SYNDROME [None]
